FAERS Safety Report 9680567 (Version 1)
Quarter: 2013Q4

REPORT INFORMATION
  Report Type: Spontaneous
  Country: US (occurrence: US)
  Receive Date: 20131111
  Receipt Date: 20131111
  Transmission Date: 20140711
  Serious: No
  Sender: FDA-Public Use
  Company Number: US-PFIZER INC-2013320849

PATIENT
  Age: 59 Year
  Sex: Female
  Weight: 68.93 kg

DRUGS (6)
  1. CHANTIX [Suspect]
     Indication: SMOKING CESSATION THERAPY
     Dosage: UNK
     Dates: start: 2012
  2. CHANTIX [Suspect]
     Dosage: 1 MG, DAILY
     Dates: end: 2012
  3. CYMBALTA [Concomitant]
     Indication: DEPRESSION
     Dosage: 60 MG, UNK
  4. LUNESTA [Concomitant]
     Indication: SLEEP DISORDER
     Dosage: 1 MG, DAILY
  5. TRAZODONE [Concomitant]
     Indication: SLEEP DISORDER
     Dosage: 150 MG, DAILY
  6. ATORVASTATIN CALCIUM [Concomitant]
     Dosage: 20 MG, UNK

REACTIONS (1)
  - Abnormal dreams [Not Recovered/Not Resolved]
